FAERS Safety Report 10877417 (Version 1)
Quarter: 2015Q1

REPORT INFORMATION
  Report Type: Spontaneous
  Country: US (occurrence: None)
  Receive Date: 20150224
  Receipt Date: 20150224
  Transmission Date: 20150721
  Serious: No
  Sender: FDA-Public Use
  Company Number: None

PATIENT
  Age: 61 Year
  Sex: Female
  Weight: 95.26 kg

DRUGS (12)
  1. COENZYME Q10 [Concomitant]
     Active Substance: UBIDECARENONE
  2. HERBAL TEAS [Concomitant]
     Active Substance: HERBALS
  3. JUBLIA [Suspect]
     Active Substance: EFINACONAZOLE
     Indication: ONYCHOMYCOSIS
     Dosage: ONE DROP ON EACH OF 5 TOENAILS + SKIN
     Dates: start: 20150119, end: 20150204
  4. SYNTHROID [Concomitant]
     Active Substance: LEVOTHYROXINE SODIUM
  5. GLUCOSAMINE CENDOROHINE [Concomitant]
  6. FLAVOINOID [Concomitant]
  7. JUBLIA [Suspect]
     Active Substance: EFINACONAZOLE
     Indication: NAIL DISCOLOURATION
     Dosage: ONE DROP ON EACH OF 5 TOENAILS + SKIN
     Dates: start: 20150119, end: 20150204
  8. VITA-CEE [Concomitant]
  9. HIBISCUS BREEZE [Concomitant]
     Active Substance: ALCOHOL
  10. MULTIVITAMIN [Concomitant]
     Active Substance: VITAMINS
  11. PROAIR HFA [Concomitant]
     Active Substance: ALBUTEROL SULFATE
  12. VITA-DEE [Concomitant]

REACTIONS (3)
  - Ingrowing nail [None]
  - Palpitations [None]
  - Device issue [None]

NARRATIVE: CASE EVENT DATE: 20150204
